FAERS Safety Report 17808236 (Version 1)
Quarter: 2020Q2

REPORT INFORMATION
  Report Type: Spontaneous
  Country: US (occurrence: US)
  Receive Date: 20200520
  Receipt Date: 20200520
  Transmission Date: 20200714
  Serious: Yes (Hospitalization)
  Sender: FDA-Public Use
  Company Number: None

PATIENT
  Sex: Female

DRUGS (4)
  1. MYCOPHENOLATE [Suspect]
     Active Substance: MYCOPHENOLIC ACID
     Indication: SKIN INFECTION
     Route: 048
     Dates: start: 20200501
  2. PREDINISONE [Concomitant]
  3. TRAMADOL. [Concomitant]
     Active Substance: TRAMADOL
  4. MYCOPHENOLAT [Concomitant]
     Active Substance: MYCOPHENOLATE MOFETIL

REACTIONS (1)
  - Hospitalisation [None]
